FAERS Safety Report 9250473 (Version 1)
Quarter: 2013Q1

REPORT INFORMATION
  Report Type: Spontaneous
  Country: US (occurrence: None)
  Receive Date: 20130305
  Receipt Date: 20130305
  Transmission Date: 20140127
  Serious: Yes (Other)
  Sender: FDA-Public Use
  Company Number: 163-21880-12060531

PATIENT
  Age: 71 Year
  Sex: Male
  Weight: 100.25 kg

DRUGS (12)
  1. REVLIMID [Suspect]
     Indication: PLASMA CELL MYELOMA
     Dosage: 10 MG, 1 IN 1 D, PO
     Route: 048
     Dates: start: 20120521, end: 20120525
  2. MELPHALAN (MELPHALAN) (UNKNOWN) [Concomitant]
  3. PREDNISONE (PREDNISONE) (UNKNOWN) [Concomitant]
  4. WARFARIN (WARFARIN) (UNKNOWN) [Concomitant]
  5. HCTZ (HYDROCHLOROTHIAZIDE) (UNKNOWN) [Concomitant]
  6. LOSARTAN (LOSARTAN) (UNKNOWN) [Concomitant]
  7. AMLODIPINE (AMLODIPINE) (UNKNOWN) [Concomitant]
  8. CALCIUM (CALCIUM) (UNKNOWN) [Concomitant]
  9. FINASTERIDE (FINASTERIDE) (UNKNOWN) [Concomitant]
  10. ZOFRAN (ONDANSETRON HYDROCHLORIDE) (UNKNOWN) [Concomitant]
  11. BENADRYL (DIPHENHYDRAMINE HYDROCHLORIDE) (UNKNOWN) [Concomitant]
  12. COMPAZINE (PROCHLORPERAZINE EDISYLATE) (UNKNOWN) [Concomitant]

REACTIONS (2)
  - Swelling face [None]
  - Pruritus [None]
